FAERS Safety Report 7259504-9 (Version None)
Quarter: 2011Q1

REPORT INFORMATION
  Report Type: 
  Country: None (occurrence: None)
  Receive Date: 20110129
  Receipt Date: 20100310
  Transmission Date: 20110831
  Serious: Yes (Other)
  Sender: FDA-Public Use
  Company Number: US-PFIZER INC-2010031233

PATIENT
  Sex: Male
  Weight: 90.703 kg

DRUGS (2)
  1. DIOVAN HCT [Concomitant]
     Indication: HYPERTENSION
     Dosage: 320/25 MG, UNK
  2. RELPAX [Suspect]
     Indication: MIGRAINE
     Dosage: 40 MG, AS NEEDED
     Route: 048

REACTIONS (2)
  - NECK INJURY [None]
  - MIGRAINE [None]
